FAERS Safety Report 23893534 (Version 1)
Quarter: 2024Q2

REPORT INFORMATION
  Report Type: Spontaneous
  Country: US (occurrence: None)
  Receive Date: 20240524
  Receipt Date: 20240524
  Transmission Date: 20240716
  Serious: No
  Sender: FDA-Public Use
  Company Number: US-ROCHE-3350596

PATIENT
  Age: 75 Year
  Sex: Female
  Weight: 62.652 kg

DRUGS (5)
  1. ACTEMRA [Suspect]
     Active Substance: TOCILIZUMAB
     Indication: Giant cell arteritis
     Dosage: 162 MG/0.9ML
     Route: 058
  2. ACTEMRA [Suspect]
     Active Substance: TOCILIZUMAB
  3. POTASSIUM [Concomitant]
     Active Substance: POTASSIUM
  4. ROSUVASTATIN [Concomitant]
     Active Substance: ROSUVASTATIN
     Route: 048
  5. LOSARTAN [Concomitant]
     Active Substance: LOSARTAN
     Route: 048

REACTIONS (6)
  - Device malfunction [Unknown]
  - Off label use [Unknown]
  - Drug delivery system malfunction [Unknown]
  - Wrong technique in device usage process [Unknown]
  - Intentional device misuse [Unknown]
  - No adverse event [Unknown]
